FAERS Safety Report 9279954 (Version 2)
Quarter: 2013Q2

REPORT INFORMATION
  Report Type: Spontaneous
  Country: DZ (occurrence: DZ)
  Receive Date: 20130509
  Receipt Date: 20130509
  Transmission Date: 20140414
  Serious: Yes (Death)
  Sender: FDA-Public Use
  Company Number: DZ-ROCHE-1222577

PATIENT
  Age: 40 Year
  Sex: Male

DRUGS (5)
  1. AVASTIN [Suspect]
     Indication: LUNG ADENOCARCINOMA
     Route: 042
  2. CISPLATINE [Suspect]
     Indication: LUNG ADENOCARCINOMA
     Route: 065
  3. CARBOPLATIN [Suspect]
     Indication: LUNG ADENOCARCINOMA
     Route: 065
  4. PEMETREXED [Suspect]
     Indication: LUNG ADENOCARCINOMA
     Route: 065
  5. GEMCITABINE [Suspect]
     Indication: LUNG ADENOCARCINOMA
     Route: 065

REACTIONS (3)
  - General physical condition abnormal [Fatal]
  - Disease progression [Fatal]
  - Thrombocytopenia [Not Recovered/Not Resolved]
